FAERS Safety Report 22609851 (Version 1)
Quarter: 2023Q2

REPORT INFORMATION
  Report Type: Spontaneous
  Country: GF (occurrence: GF)
  Receive Date: 20230616
  Receipt Date: 20230616
  Transmission Date: 20230721
  Serious: Yes (Other)
  Sender: FDA-Public Use
  Company Number: GF-SUN PHARMACEUTICAL INDUSTRIES LTD-2023RR-394158

PATIENT
  Age: 58 Year
  Sex: Male

DRUGS (1)
  1. VALACYCLOVIR [Suspect]
     Active Substance: VALACYCLOVIR HYDROCHLORIDE
     Indication: Herpes simplex
     Dosage: FIRST LINE TREATMNENT
     Route: 065
     Dates: start: 202001

REACTIONS (1)
  - Treatment failure [Unknown]
